FAERS Safety Report 16149967 (Version 2)
Quarter: 2019Q2

REPORT INFORMATION
  Report Type: Spontaneous
  Country: CA (occurrence: CA)
  Receive Date: 20190402
  Receipt Date: 20190402
  Transmission Date: 20190711
  Serious: Yes (Hospitalization, Other)
  Sender: FDA-Public Use
  Company Number: PHHY2019CA068036

PATIENT
  Age: 37 Year
  Sex: Male

DRUGS (8)
  1. LOVENOX [Concomitant]
     Active Substance: ENOXAPARIN SODIUM
     Indication: PRODUCT USED FOR UNKNOWN INDICATION
     Dosage: UNK
     Route: 065
  2. METHADONE [Concomitant]
     Active Substance: METHADONE HYDROCHLORIDE
     Indication: PRODUCT USED FOR UNKNOWN INDICATION
     Dosage: UNK
     Route: 065
  3. SANDOSTATIN LAR DEPOT [Suspect]
     Active Substance: OCTREOTIDE ACETATE
     Indication: PANCREATIC CARCINOMA
     Dosage: 30 MG, QMO
     Route: 030
  4. SANDOSTATIN LAR DEPOT [Suspect]
     Active Substance: OCTREOTIDE ACETATE
     Dosage: 20 MG, Q2W
     Route: 030
  5. CLINDAMYCIN. [Suspect]
     Active Substance: CLINDAMYCIN
     Indication: PRODUCT USED FOR UNKNOWN INDICATION
     Dosage: UNK
     Route: 065
  6. SANDOSTATIN LAR DEPOT [Suspect]
     Active Substance: OCTREOTIDE ACETATE
     Dosage: 30 MG, Q2W
     Route: 030
  7. MORPHINE [Suspect]
     Active Substance: MORPHINE
     Indication: PRODUCT USED FOR UNKNOWN INDICATION
     Dosage: UNK
     Route: 065
  8. SANDOSTATIN LAR DEPOT [Suspect]
     Active Substance: OCTREOTIDE ACETATE
     Dosage: 40 MG, QMO
     Route: 030

REACTIONS (36)
  - Abdominal abscess [Recovered/Resolved]
  - Blood glucose increased [Recovered/Resolved]
  - Contusion [Recovered/Resolved]
  - Device occlusion [Recovered/Resolved]
  - Injection site pain [Recovered/Resolved]
  - Myocardial infarction [Recovered/Resolved]
  - Needle issue [Recovered/Resolved]
  - Malaise [Recovered/Resolved]
  - Fatigue [Recovered/Resolved]
  - Headache [Recovered/Resolved]
  - Vomiting [Recovered/Resolved]
  - Malignant neoplasm progression [Recovered/Resolved]
  - Pain [Recovered/Resolved]
  - Pallor [Recovered/Resolved]
  - Oxygen consumption decreased [Recovered/Resolved]
  - Muscle spasms [Recovered/Resolved]
  - Restlessness [Recovered/Resolved]
  - Hypersomnia [Recovered/Resolved]
  - Stress [Recovered/Resolved]
  - Withdrawal syndrome [Recovered/Resolved]
  - Cough [Recovered/Resolved]
  - Arthralgia [Recovered/Resolved]
  - Blood glucose fluctuation [Recovered/Resolved]
  - Hypertension [Recovered/Resolved]
  - Metastases to lung [Recovered/Resolved]
  - Cellulitis [Recovered/Resolved]
  - Device toxicity [Recovered/Resolved]
  - Hepatic neoplasm [Recovered/Resolved]
  - Renal impairment [Recovered/Resolved]
  - Nausea [Recovered/Resolved]
  - Inappropriate schedule of product administration [Recovered/Resolved]
  - Liver function test abnormal [Recovered/Resolved]
  - Injection site mass [Recovered/Resolved]
  - Lower respiratory tract infection [Recovered/Resolved]
  - Pulmonary embolism [Recovered/Resolved]
  - Peripheral swelling [Recovered/Resolved]
